FAERS Safety Report 10902004 (Version 9)
Quarter: 2020Q2

REPORT INFORMATION
  Report Type: Spontaneous
  Country: US (occurrence: US)
  Receive Date: 20150310
  Receipt Date: 20200521
  Transmission Date: 20200713
  Serious: Yes (Death, Other)
  Sender: FDA-Public Use
  Company Number: US-MERCK-1503USA004182

PATIENT
  Sex: Male

DRUGS (1)
  1. PROPECIA [Suspect]
     Active Substance: FINASTERIDE
     Indication: ANDROGENETIC ALOPECIA
     Dosage: 1 MG, QD
     Route: 048
     Dates: start: 20080507, end: 201203

REACTIONS (40)
  - Substance abuse [Unknown]
  - Aggression [Unknown]
  - Body temperature abnormal [Unknown]
  - Fatigue [Unknown]
  - Depression [Unknown]
  - Suspiciousness [Unknown]
  - Arteriosclerosis coronary artery [Unknown]
  - Suicidal ideation [Not Recovered/Not Resolved]
  - Judgement impaired [Unknown]
  - Insomnia [Not Recovered/Not Resolved]
  - Depression [Not Recovered/Not Resolved]
  - Mental disorder [Not Recovered/Not Resolved]
  - Melanocytic naevus [Unknown]
  - Completed suicide [Fatal]
  - Psychiatric symptom [Unknown]
  - Abnormal behaviour [Not Recovered/Not Resolved]
  - Tremor [Unknown]
  - Cognitive disorder [Unknown]
  - Repetitive speech [Unknown]
  - Confusional state [Unknown]
  - Multiple injuries [Fatal]
  - Anger [Unknown]
  - Panic attack [Unknown]
  - Anxiety [Unknown]
  - Weight increased [Unknown]
  - Stress [Unknown]
  - Anxiety [Unknown]
  - Abnormal behaviour [Unknown]
  - Panic attack [Unknown]
  - Libido decreased [Unknown]
  - Dyspepsia [Unknown]
  - Anger [Unknown]
  - Obsessive-compulsive disorder [Unknown]
  - Feeling cold [Unknown]
  - Social avoidant behaviour [Unknown]
  - Muscle twitching [Unknown]
  - Nervousness [Unknown]
  - Chapped lips [Unknown]
  - Sexual dysfunction [Unknown]
  - Aortic arteriosclerosis [Unknown]

NARRATIVE: CASE EVENT DATE: 200806
